FAERS Safety Report 8998516 (Version 2)
Quarter: 2013Q1

REPORT INFORMATION
  Report Type: Report from Study
  Country: US (occurrence: US)
  Receive Date: 20130103
  Receipt Date: 20130117
  Transmission Date: 20140127
  Serious: Yes (Hospitalization)
  Sender: FDA-Public Use
  Company Number: US-ROCHE-1175646

PATIENT
  Age: 49 Year
  Sex: Male

DRUGS (3)
  1. ALTEPLASE [Suspect]
     Indication: RETINAL VEIN OCCLUSION
     Route: 050
  2. ASPIRIN [Suspect]
     Indication: COAGULOPATHY
     Route: 065
  3. COUMADIN [Suspect]
     Indication: COAGULOPATHY
     Route: 065

REACTIONS (2)
  - Open angle glaucoma [Unknown]
  - Vitreous haemorrhage [Unknown]
